FAERS Safety Report 12840702 (Version 1)
Quarter: 2016Q4

REPORT INFORMATION
  Report Type: Spontaneous
  Country: US (occurrence: US)
  Receive Date: 20161012
  Receipt Date: 20161012
  Transmission Date: 20170207
  Serious: No
  Sender: FDA-Public Use
  Company Number: US-009507513-1610USA002675

PATIENT
  Age: 27 Year
  Sex: Female
  Weight: 77.1 kg

DRUGS (1)
  1. IMPLANON [Suspect]
     Active Substance: ETONOGESTREL
     Indication: CONTRACEPTION
     Dosage: LEFT ARM, EVERY 3 YEARS
     Route: 059
     Dates: start: 20100317

REACTIONS (3)
  - Incorrect drug administration duration [Unknown]
  - Amenorrhoea [Unknown]
  - Device kink [Not Recovered/Not Resolved]

NARRATIVE: CASE EVENT DATE: 2010
